FAERS Safety Report 13555275 (Version 1)
Quarter: 2017Q2

REPORT INFORMATION
  Report Type: Spontaneous
  Country: BR (occurrence: BR)
  Receive Date: 20170517
  Receipt Date: 20170517
  Transmission Date: 20170830
  Serious: Yes (Death, Hospitalization)
  Sender: FDA-Public Use
  Company Number: BR-ASTRAZENECA-2017SE03187

PATIENT
  Age: 1098 Month
  Sex: Female

DRUGS (10)
  1. NATRILIX [Concomitant]
     Active Substance: INDAPAMIDE
  2. CITALOPRAM [Concomitant]
     Active Substance: CITALOPRAM HYDROBROMIDE
  3. DAFLON [Concomitant]
     Active Substance: DIOSMIN\HESPERIDIN
  4. ASA [Concomitant]
     Active Substance: ASPIRIN
  5. MINERAL OIL EMULSION [Concomitant]
     Active Substance: MINERAL OIL EMULSION
  6. LACTULONE [Concomitant]
  7. SINVASTACOR [Concomitant]
     Active Substance: SIMVASTATIN
  8. DIAMICRON [Concomitant]
     Active Substance: GLICLAZIDE
  9. BRILINTA [Suspect]
     Active Substance: TICAGRELOR
     Indication: CEREBROVASCULAR ACCIDENT
     Route: 048
     Dates: start: 20161121
  10. DOMPERIDONE [Concomitant]
     Active Substance: DOMPERIDONE

REACTIONS (11)
  - Hypovolaemic shock [Fatal]
  - Gastritis haemorrhagic [Unknown]
  - Renal failure [Unknown]
  - Gastrooesophageal reflux disease [Unknown]
  - Dyspnoea [Unknown]
  - Hallucination [Not Recovered/Not Resolved]
  - Back pain [Unknown]
  - Infection [Unknown]
  - Fatigue [Unknown]
  - Gastrointestinal haemorrhage [Fatal]
  - Cerebellar stroke [Fatal]

NARRATIVE: CASE EVENT DATE: 201612
